FAERS Safety Report 4529632-7 (Version None)
Quarter: 2004Q4

REPORT INFORMATION
  Report Type: 
  Country: None (occurrence: None)
  Receive Date: 20041216
  Receipt Date: 20041014
  Transmission Date: 20050328
  Serious: Yes (Life-Threatening, Hospitalization, Disabling)
  Sender: FDA-Public Use
  Company Number: US-MERCK-0410USA02282

PATIENT
  Age: 49 Year
  Sex: Female

DRUGS (8)
  1. VIOXX [Suspect]
     Indication: SOFT TISSUE INJURY
     Route: 048
  2. VIOXX [Suspect]
     Indication: ARTHRALGIA
     Route: 048
  3. SYNTHROID [Concomitant]
     Route: 065
  4. NAPROSYN [Concomitant]
     Route: 065
  5. SELDANE [Concomitant]
     Route: 065
  6. TAGAMET [Concomitant]
     Route: 065
  7. CORTICOSTEROIDS (UNSPECIFIED) [Concomitant]
     Route: 065
  8. [THERAPY UNSPECIFIED] [Concomitant]
     Route: 065

REACTIONS (2)
  - DRUG INEFFECTIVE [None]
  - MYOCARDIAL INFARCTION [None]
